FAERS Safety Report 5699708-X (Version None)
Quarter: 2008Q2

REPORT INFORMATION
  Report Type: 
  Country: None (occurrence: None)
  Receive Date: 20080410
  Receipt Date: 20080331
  Transmission Date: 20081010
  Serious: Yes (Other)
  Sender: FDA-Public Use
  Company Number: PHRM2008FR00985

PATIENT
  Age: 5 Year
  Sex: Male

DRUGS (7)
  1. TEGRETOL [Suspect]
     Indication: CONVULSION
     Dosage: 200 MG, BID
     Route: 048
     Dates: start: 20060814
  2. EPITOMAX [Concomitant]
     Indication: CONVULSION
     Route: 048
     Dates: end: 20080201
  3. RIVOTRIL [Concomitant]
     Indication: CONVULSION
     Dosage: 6 DRP, TID
     Route: 048
  4. GARDENAL [Concomitant]
     Indication: CONVULSION
     Dosage: 150 MG, QD
     Route: 048
     Dates: start: 20060814
  5. FAT/CARBOHYDRATES/PROTEINS/MINERALS/VITAMINS, [Concomitant]
  6. TRILEPTAL [Suspect]
     Indication: CONVULSION
     Dosage: 900 MG, BID
     Route: 048
     Dates: start: 20060825
  7. FORLAX [Concomitant]
     Dosage: 1 DF, QD
     Route: 048

REACTIONS (5)
  - ANGIOEDEMA [None]
  - COUGH [None]
  - FACE OEDEMA [None]
  - RASH SCARLATINIFORM [None]
  - URTICARIA [None]
